FAERS Safety Report 12312960 (Version 3)
Quarter: 2016Q3

REPORT INFORMATION
  Report Type: Spontaneous
  Country: DE (occurrence: DE)
  Receive Date: 20160428
  Receipt Date: 20160812
  Transmission Date: 20161109
  Serious: Yes (Life-Threatening, Hospitalization)
  Sender: FDA-Public Use
  Company Number: DE-ORION CORPORATION ORION PHARMA-ENTC2016-0201

PATIENT
  Sex: Female

DRUGS (2)
  1. STALEVO [Suspect]
     Active Substance: CARBIDOPA\ENTACAPONE\LEVODOPA
     Dosage: 75 MG AT 7:30, 11:00,14:00; 50 MG AT 17:00; 100 MG AT 19:30, 22:00, 0:30
     Route: 065
  2. STALEVO [Suspect]
     Active Substance: CARBIDOPA\ENTACAPONE\LEVODOPA
     Indication: PARKINSON^S DISEASE
     Dosage: 75 MG AT 7:30, 11:00,14:00; 50 MG AT 17:00; 100 MG AT 19:30, 22:00, 0:30
     Route: 065
     Dates: start: 2002

REACTIONS (9)
  - Language disorder [Recovering/Resolving]
  - Confusional state [Not Recovered/Not Resolved]
  - Apathy [Not Recovered/Not Resolved]
  - Myalgia [Not Recovered/Not Resolved]
  - Asthenia [Not Recovered/Not Resolved]
  - Aphasia [Recovering/Resolving]
  - Cerebrovascular accident [Not Recovered/Not Resolved]
  - Dysarthria [Recovering/Resolving]
  - Transient ischaemic attack [Not Recovered/Not Resolved]
